FAERS Safety Report 15385727 (Version 1)
Quarter: 2018Q3

REPORT INFORMATION
  Report Type: Report from Study
  Country: US (occurrence: US)
  Receive Date: 20180914
  Receipt Date: 20180914
  Transmission Date: 20181010
  Serious: Yes (Hospitalization)
  Sender: FDA-Public Use
  Company Number: US-RETROPHIN, INC.-2018RTN00040

PATIENT
  Age: 1 Month
  Sex: Male
  Weight: 4.1 kg

DRUGS (11)
  1. FERROUS SULFATE. [Concomitant]
     Active Substance: FERROUS SULFATE
     Dosage: 1 ML, 1X/DAY
     Route: 048
  2. CHOLBAM [Suspect]
     Active Substance: CHOLIC ACID
     Indication: CEREBROHEPATORENAL SYNDROME
     Dosage: 50 MG, 1X/DAY
     Route: 048
     Dates: start: 20180814, end: 20180816
  3. PHENOBARBITAL. [Concomitant]
     Active Substance: PHENOBARBITAL
     Dosage: 13.86 MG UNK (DECREASED 10%)
     Dates: start: 20180807, end: 201808
  4. CHOLBAM [Suspect]
     Active Substance: CHOLIC ACID
     Dosage: 50 MG, 1X/DAY
     Route: 048
     Dates: start: 20180821
  5. PHENOBARBITAL. [Concomitant]
     Active Substance: PHENOBARBITAL
     Dosage: 15.4 UNK
     Dates: start: 201807, end: 20180806
  6. ACETAZOLAMIDE. [Concomitant]
     Active Substance: ACETAZOLAMIDE
     Dosage: 12 MG COMPOUNDING, 3X/DAY (EVERY 8 HOURS)
  7. ZOSYN [Suspect]
     Active Substance: PIPERACILLIN SODIUM\TAZOBACTAM SODIUM
     Indication: INFECTION
     Dosage: 4 DOSAGE UNITS
     Dates: start: 20180818, end: 20180819
  8. CHOLECALCIFEROL [Concomitant]
     Active Substance: CHOLECALCIFEROL
     Dosage: 1 ML, 1X/DAY
     Route: 048
  9. PHENOBARBITAL. [Concomitant]
     Active Substance: PHENOBARBITAL
     Dosage: 15.4 UNK
     Dates: start: 201808, end: 20180826
  10. LATANOPROST. [Concomitant]
     Active Substance: LATANOPROST
     Dosage: 1 DROP, 1X/DAY IN EACH EYE
     Route: 047
  11. PHENOBARBITAL. [Concomitant]
     Active Substance: PHENOBARBITAL
     Dosage: 16 MG COMPOUNDING, 2X/DAY (EVERY 12 HOURS)
     Dates: start: 20180827

REACTIONS (8)
  - Viral infection [Unknown]
  - Haemoglobin decreased [Recovered/Resolved]
  - C-reactive protein increased [Unknown]
  - Rash vesicular [Unknown]
  - Rash maculo-papular [Unknown]
  - Pyrexia [Unknown]
  - Irritability [Unknown]
  - Abdominal distension [Unknown]

NARRATIVE: CASE EVENT DATE: 20180816
